FAERS Safety Report 8461046-X (Version None)
Quarter: 2012Q2

REPORT INFORMATION
  Report Type: 
  Country: None (occurrence: None)
  Receive Date: 20120625
  Receipt Date: 20120618
  Transmission Date: 20120825
  Serious: No
  Sender: FDA-Public Use
  Company Number: US-BIOGENIDEC-2012BI021613

PATIENT
  Sex: Female

DRUGS (1)
  1. TYSABRI [Suspect]
     Indication: MULTIPLE SCLEROSIS
     Route: 042
     Dates: start: 20120601

REACTIONS (9)
  - ANXIETY [None]
  - MEMORY IMPAIRMENT [None]
  - DEPRESSED MOOD [None]
  - INSOMNIA [None]
  - RASH PAPULAR [None]
  - FATIGUE [None]
  - CLUMSINESS [None]
  - DISTURBANCE IN ATTENTION [None]
  - PARANOIA [None]
